FAERS Safety Report 6916343-3 (Version None)
Quarter: 2010Q3

REPORT INFORMATION
  Report Type: 
  Country: None (occurrence: None)
  Receive Date: 20100804
  Receipt Date: 20100723
  Transmission Date: 20110219
  Serious: Yes (Other)
  Sender: FDA-Public Use
  Company Number: 7012401

PATIENT
  Age: 40 Year
  Sex: Female

DRUGS (3)
  1. REBIF [Suspect]
     Indication: SECONDARY PROGRESSIVE MULTIPLE SCLEROSIS
     Dosage: 44 MCG, 3 IN 1 WK, SUBCUTANEOUS
     Route: 058
     Dates: start: 20070219
  2. PHENOBARBITAL TAB [Concomitant]
  3. PHENYTOIN [Concomitant]

REACTIONS (7)
  - APHONIA [None]
  - CONDITION AGGRAVATED [None]
  - CONVULSION [None]
  - INJECTION SITE ERYTHEMA [None]
  - PURULENCE [None]
  - SCAR [None]
  - WOUND [None]
